FAERS Safety Report 16011099 (Version 2)
Quarter: 2019Q1

REPORT INFORMATION
  Report Type: Spontaneous
  Country: JP (occurrence: JP)
  Receive Date: 20190227
  Receipt Date: 20190312
  Transmission Date: 20190418
  Serious: Yes (Hospitalization, Other)
  Sender: FDA-Public Use
  Company Number: JP-ACTELION-A-CH2019-186689

PATIENT
  Age: 40 Year
  Sex: Female

DRUGS (4)
  1. EPOPROSTENOL SODIUM. [Suspect]
     Active Substance: EPOPROSTENOL SODIUM
     Indication: PULMONARY ARTERIAL HYPERTENSION
     Dosage: 140 NG/KG, PER MIN
     Route: 042
  2. OPSUMIT [Suspect]
     Active Substance: MACITENTAN
     Indication: PULMONARY ARTERIAL HYPERTENSION
     Route: 048
  3. TADALAFIL. [Suspect]
     Active Substance: TADALAFIL
     Indication: PRODUCT USED FOR UNKNOWN INDICATION
     Route: 048
  4. SILDENAFIL. [Suspect]
     Active Substance: SILDENAFIL
     Indication: PRODUCT USED FOR UNKNOWN INDICATION
     Dosage: UNK UNK, PER MIN
     Route: 048

REACTIONS (11)
  - Pneumoperitoneum [Unknown]
  - Thrombocytopenia [Unknown]
  - Condition aggravated [Unknown]
  - Platelet transfusion [Unknown]
  - Concomitant disease aggravated [Unknown]
  - Haemoptysis [Unknown]
  - Pulmonary arterial hypertension [Unknown]
  - Cholecystitis [Unknown]
  - Haemobilia [Unknown]
  - Laparoscopic surgery [Unknown]
  - Abdominal pain upper [Unknown]
